FAERS Safety Report 21177928 (Version 1)
Quarter: 2022Q3

REPORT INFORMATION
  Report Type: Report from Study
  Country: DE (occurrence: DE)
  Receive Date: 20220805
  Receipt Date: 20220805
  Transmission Date: 20221026
  Serious: Yes (Hospitalization)
  Sender: FDA-Public Use
  Company Number: DE-MYLANLABS-2022M1080340

PATIENT
  Sex: Female

DRUGS (29)
  1. UNSPECIFIED INGREDIENT [Suspect]
     Active Substance: UNSPECIFIED INGREDIENT
     Dosage: NO DOSE GIVEN
  2. METHOTREXATE SODIUM [Suspect]
     Active Substance: METHOTREXATE SODIUM
     Indication: Rheumatoid arthritis
     Dosage: 20 MILLIGRAM
     Dates: start: 20180720
  3. METHOTREXATE SODIUM [Suspect]
     Active Substance: METHOTREXATE SODIUM
     Dosage: 20 MILLIGRAM
     Dates: start: 20190913
  4. METHOTREXATE SODIUM [Suspect]
     Active Substance: METHOTREXATE SODIUM
     Dosage: 20 MILLIGRAM
     Dates: start: 20161227
  5. METHOTREXATE SODIUM [Suspect]
     Active Substance: METHOTREXATE SODIUM
     Dosage: 15 MILLIGRAM
     Dates: start: 20210924
  6. METHOTREXATE SODIUM [Suspect]
     Active Substance: METHOTREXATE SODIUM
     Dosage: 20 MILLIGRAM
     Dates: start: 20160520
  7. METHOTREXATE SODIUM [Suspect]
     Active Substance: METHOTREXATE SODIUM
     Dosage: 15 MILLIGRAM
     Dates: start: 20130831
  8. METHOTREXATE SODIUM [Suspect]
     Active Substance: METHOTREXATE SODIUM
     Dosage: 15.0 MILLIGRAM
     Dates: start: 20140111
  9. METHOTREXATE SODIUM [Suspect]
     Active Substance: METHOTREXATE SODIUM
     Dosage: 20 MILLIGRAM
     Dates: start: 20190215
  10. METHOTREXATE SODIUM [Suspect]
     Active Substance: METHOTREXATE SODIUM
     Dosage: 20 MILLIGRAM
     Dates: start: 20180112
  11. METHOTREXATE SODIUM [Suspect]
     Active Substance: METHOTREXATE SODIUM
     Dosage: 15.0 MILLIGRAM
     Dates: start: 20140516
  12. METHOTREXATE SODIUM [Suspect]
     Active Substance: METHOTREXATE SODIUM
     Dosage: 15.0 MILLIGRAM
     Dates: start: 20141107
  13. METHOTREXATE SODIUM [Suspect]
     Active Substance: METHOTREXATE SODIUM
     Dosage: 20 MILLIGRAM
     Dates: start: 20210326
  14. METHOTREXATE SODIUM [Suspect]
     Active Substance: METHOTREXATE SODIUM
     Dosage: 20 MILLIGRAM
     Dates: start: 20170630
  15. METHOTREXATE SODIUM [Suspect]
     Active Substance: METHOTREXATE SODIUM
     Dosage: 20.0 MILLIGRAM
     Dates: start: 20150523
  16. METHOTREXATE SODIUM [Suspect]
     Active Substance: METHOTREXATE SODIUM
     Dosage: 20 MILLIGRAM
     Dates: start: 20151125
  17. METHOTREXATE SODIUM [Suspect]
     Active Substance: METHOTREXATE SODIUM
     Dosage: 20 MILLIGRAM
     Dates: start: 20200306
  18. METHOTREXATE SODIUM [Suspect]
     Active Substance: METHOTREXATE SODIUM
     Dosage: 20 MILLIGRAM
     Dates: start: 20190308
  19. LEFLUNOMIDE [Suspect]
     Active Substance: LEFLUNOMIDE
     Indication: Rheumatoid arthritis
     Dosage: 20 MILLIGRAM
     Dates: start: 20130831
  20. LEFLUNOMIDE [Suspect]
     Active Substance: LEFLUNOMIDE
     Dosage: UNK
     Dates: start: 20140111
  21. OLUMIANT [Concomitant]
     Active Substance: BARICITINIB
     Dosage: 2 MILLIGRAM
     Dates: start: 202012, end: 202103
  22. TRUXIMA [Concomitant]
     Active Substance: RITUXIMAB-ABBS
     Dosage: 1000 MILLIGRAM
     Dates: start: 201911
  23. CIMZIA [Concomitant]
     Active Substance: CERTOLIZUMAB PEGOL
     Dosage: 200 MILLIGRAM
     Dates: start: 201401, end: 201405
  24. INFLECTRA [Concomitant]
     Active Substance: INFLIXIMAB-DYYB
     Dosage: 200 MILLIGRAM
     Dates: start: 201504, end: 201604
  25. ENBREL [Concomitant]
     Active Substance: ETANERCEPT
     Dosage: 50 MILLIGRAM
     Dates: start: 201405, end: 201408
  26. HUMIRA [Concomitant]
     Active Substance: ADALIMUMAB
     Dosage: 40 MILLIGRAM
     Dates: start: 201408, end: 201503
  27. RINVOQ [Concomitant]
     Active Substance: UPADACITINIB
     Dosage: 15 MILLIGRAM
  28. RINVOQ [Concomitant]
     Active Substance: UPADACITINIB
     Dosage: 15 MILLIGRAM
     Dates: start: 202103
  29. TOCILIZUMAB [Concomitant]
     Active Substance: TOCILIZUMAB
     Dosage: 162 MILLIGRAM
     Dates: start: 201604, end: 201911

REACTIONS (1)
  - COVID-19 [Recovered/Resolved]

NARRATIVE: CASE EVENT DATE: 20201101
